FAERS Safety Report 15067266 (Version 3)
Quarter: 2018Q3

REPORT INFORMATION
  Report Type: Report from Study
  Country: None (occurrence: US)
  Receive Date: 20180626
  Receipt Date: 20180808
  Transmission Date: 20181010
  Serious: Yes (Hospitalization)
  Sender: FDA-Public Use
  Company Number: US-ABBVIE-18K-163-2375930-00

PATIENT
  Age: 57 Year
  Sex: Male
  Weight: 102.15 kg

DRUGS (1)
  1. HUMIRA [Suspect]
     Active Substance: ADALIMUMAB
     Indication: RHEUMATOID ARTHRITIS
     Route: 058
     Dates: start: 2012

REACTIONS (4)
  - Nerve compression [Recovered/Resolved]
  - Joint stiffness [Unknown]
  - Musculoskeletal stiffness [Unknown]
  - Procedural pain [Unknown]

NARRATIVE: CASE EVENT DATE: 201803
